FAERS Safety Report 9505611 (Version 1)
Quarter: 2013Q1

REPORT INFORMATION
  Report Type: Spontaneous
  Country: US (occurrence: None)
  Receive Date: 20130220
  Receipt Date: 20130220
  Transmission Date: 20140127
  Serious: No
  Sender: FDA-Public Use
  Company Number: 1000041172

PATIENT
  Sex: Male

DRUGS (3)
  1. VIIBYRD [Suspect]
     Dosage: 10 MG (10 MG, 1 IN 1 D), ORAL
     Route: 048
     Dates: start: 201211, end: 2012
  2. IBUPROFEN (IBUPROFEN) [Suspect]
     Dates: start: 201212
  3. DICLOFENAC (DICLOFENAC) [Suspect]
     Dates: start: 201212

REACTIONS (1)
  - Gastritis [None]
